FAERS Safety Report 4678082-1 (Version None)
Quarter: 2005Q2

REPORT INFORMATION
  Report Type: 
  Country: None (occurrence: None)
  Receive Date: 20050601
  Receipt Date: 20050520
  Transmission Date: 20051028
  Serious: Yes (Hospitalization)
  Sender: FDA-Public Use
  Company Number: US-JNJFOC-20050106621

PATIENT
  Sex: Female
  Weight: 45.36 kg

DRUGS (18)
  1. REMICADE [Suspect]
     Indication: RHEUMATOID ARTHRITIS
     Route: 042
  2. DELIBIA [Concomitant]
     Indication: ANTIINFLAMMATORY THERAPY
  3. PREDNISONE TAB [Concomitant]
  4. POTASSIUM CHLORIDE [Concomitant]
     Indication: NUTRITIONAL SUPPORT
  5. VITAMINS [Concomitant]
  6. CITRUCAL [Concomitant]
     Indication: OSTEOPOROSIS
  7. FIORICET [Concomitant]
  8. FIORICET [Concomitant]
  9. FIORICET [Concomitant]
  10. SALAGEN [Concomitant]
     Indication: DRY MOUTH
  11. NEXIUM [Concomitant]
     Indication: GASTROINTESTINAL DISORDER
  12. LIBRAX [Concomitant]
  13. LIBRAX [Concomitant]
     Indication: GASTROINTESTINAL DISORDER
  14. COZAAR [Concomitant]
     Indication: BLOOD PRESSURE
  15. PERCOCET [Concomitant]
  16. PERCOCET [Concomitant]
  17. PERCOCET [Concomitant]
  18. PROMETHAZINE [Concomitant]
     Indication: NAUSEA

REACTIONS (18)
  - ABDOMINAL PAIN UPPER [None]
  - BRONCHITIS [None]
  - CHOLELITHIASIS [None]
  - DEPRESSION [None]
  - DISEASE RECURRENCE [None]
  - DRY EYE [None]
  - DRY MOUTH [None]
  - FATIGUE [None]
  - INCISIONAL HERNIA [None]
  - INFECTION [None]
  - MULTIPLE ALLERGIES [None]
  - ORAL LICHEN PLANUS [None]
  - POOR VENOUS ACCESS [None]
  - SINUSITIS [None]
  - SKIN ULCER [None]
  - STOMATITIS [None]
  - UMBILICAL HERNIA [None]
  - WOUND INFECTION [None]
